FAERS Safety Report 12223221 (Version 3)
Quarter: 2016Q2

REPORT INFORMATION
  Report Type: Spontaneous
  Country: US (occurrence: US)
  Receive Date: 20160330
  Receipt Date: 20160427
  Transmission Date: 20160815
  Serious: Yes (Other)
  Sender: FDA-Public Use
  Company Number: US-PFIZER INC-2016178591

PATIENT
  Age: 18 Year
  Sex: Male

DRUGS (1)
  1. SULFAMETHOXAZOLE/TRIMETHOPRIM [Suspect]
     Active Substance: SULFAMETHOXAZOLE\TRIMETHOPRIM
     Indication: PARONYCHIA
     Dosage: UNK
     Dates: start: 2014

REACTIONS (15)
  - Face injury [None]
  - Depression [None]
  - Hallucinations, mixed [None]
  - Psychotic disorder [Unknown]
  - Agitation [None]
  - Intentional product misuse [None]
  - Inappropriate schedule of drug administration [None]
  - Nail infection [None]
  - Mood altered [None]
  - Intentional self-injury [None]
  - Facial bones fracture [None]
  - Brain contusion [None]
  - Gun shot wound [None]
  - Subdural haemorrhage [None]
  - Central nervous system lesion [None]

NARRATIVE: CASE EVENT DATE: 2014
